FAERS Safety Report 15334516 (Version 1)
Quarter: 2018Q3

REPORT INFORMATION
  Report Type: Spontaneous
  Country: US (occurrence: US)
  Receive Date: 20180827
  Receipt Date: 20180827
  Transmission Date: 20181010
  Serious: No
  Sender: FDA-Public Use
  Company Number: None

PATIENT
  Age: 44 Year
  Sex: Male

DRUGS (1)
  1. STIVARGA [Suspect]
     Active Substance: REGORAFENIB
     Indication: PRODUCT USED FOR UNKNOWN INDICATION
     Route: 048
     Dates: start: 20180716

REACTIONS (5)
  - Blister [None]
  - Pain of skin [None]
  - Hypertension [None]
  - Blood bilirubin increased [None]
  - Pruritus [None]

NARRATIVE: CASE EVENT DATE: 20180816
